FAERS Safety Report 21601126 (Version 1)
Quarter: 2022Q4

REPORT INFORMATION
  Report Type: Spontaneous
  Country: FR (occurrence: FR)
  Receive Date: 20221116
  Receipt Date: 20221116
  Transmission Date: 20230112
  Serious: Yes (Death, Other)
  Sender: FDA-Public Use
  Company Number: FR-ABBVIE-4202117

PATIENT
  Age: 60 Year
  Sex: Female

DRUGS (8)
  1. DEPAKOTE [Suspect]
     Active Substance: DIVALPROEX SODIUM
     Indication: Psychotic disorder
     Route: 065
     Dates: end: 20221015
  2. ERYTHROGEL (ERYTHROMYCIN) [Concomitant]
     Indication: Product used for unknown indication
     Route: 065
  3. OXAZEPAM [Suspect]
     Active Substance: OXAZEPAM
     Indication: Psychotic disorder
     Dosage: 10 MILLIGRAM
     Route: 065
     Dates: end: 20221015
  4. VIMPAT [Suspect]
     Active Substance: LACOSAMIDE
     Indication: Psychotic disorder
     Dosage: 100 MILLIGRAM
     Route: 065
     Dates: end: 20221015
  5. TROPATEPINE HYDROCHLORIDE [Suspect]
     Active Substance: TROPATEPINE HYDROCHLORIDE
     Indication: Psychotic disorder
     Dosage: 500 MILLIGRAM
     Route: 065
     Dates: end: 20221015
  6. PANTOPRAZOLE SODIUM [Concomitant]
     Active Substance: PANTOPRAZOLE SODIUM
     Indication: Product used for unknown indication
     Route: 065
     Dates: end: 20221015
  7. QUETIAPINE [Suspect]
     Active Substance: QUETIAPINE
     Indication: Psychotic disorder
     Dosage: 300 MILLIGRAM
     Route: 065
     Dates: end: 20221015
  8. CLOZAPINE [Suspect]
     Active Substance: CLOZAPINE
     Indication: Psychotic disorder
     Dosage: 300 MILLIGRAM
     Route: 048
     Dates: end: 20221015

REACTIONS (1)
  - Cardio-respiratory arrest [Fatal]
